FAERS Safety Report 24342495 (Version 7)
Quarter: 2025Q2

REPORT INFORMATION
  Report Type: Spontaneous
  Country: DE (occurrence: DE)
  Receive Date: 20240920
  Receipt Date: 20250610
  Transmission Date: 20250717
  Serious: Yes (Hospitalization, Other)
  Sender: CELLTRION
  Company Number: DE-CELLTRION INC.-2024DE013866

PATIENT

DRUGS (78)
  1. INFLIXIMAB [Suspect]
     Active Substance: INFLIXIMAB
     Indication: Axial spondyloarthritis
     Dosage: 400 MG, EVERY 2 WEEKS; VISIT/DATE OF T09: 2023-05-03, T10: 2023-08-25, AND T11: 2023-12-08
     Route: 042
     Dates: start: 20230419
  2. INFLIXIMAB [Suspect]
     Active Substance: INFLIXIMAB
     Indication: Axial spondyloarthritis
     Route: 058
     Dates: start: 20230419
  3. IBUPROFEN [Concomitant]
     Active Substance: IBUPROFEN
     Dates: start: 20191105
  4. IBUPROFEN [Concomitant]
     Active Substance: IBUPROFEN
  5. IBUPROFEN [Concomitant]
     Active Substance: IBUPROFEN
     Dates: start: 20180615, end: 20190310
  6. IBUPROFEN [Concomitant]
     Active Substance: IBUPROFEN
     Dates: start: 20191105
  7. IBUPROFEN [Concomitant]
     Active Substance: IBUPROFEN
     Dates: start: 20191105
  8. IBUPROFEN [Concomitant]
     Active Substance: IBUPROFEN
     Dates: start: 20191105
  9. IBUPROFEN [Concomitant]
     Active Substance: IBUPROFEN
     Dates: start: 20191105
  10. IBUPROFEN [Concomitant]
     Active Substance: IBUPROFEN
     Dates: start: 20191105
  11. IBUPROFEN [Concomitant]
     Active Substance: IBUPROFEN
     Dates: start: 20191105
  12. IBUPROFEN [Concomitant]
     Active Substance: IBUPROFEN
     Dates: start: 20191105
  13. IBUPROFEN [Concomitant]
     Active Substance: IBUPROFEN
     Dates: start: 20191105
  14. IBUPROFEN [Concomitant]
     Active Substance: IBUPROFEN
     Dates: start: 20191105
  15. IBUPROFEN [Concomitant]
     Active Substance: IBUPROFEN
     Dates: start: 20191105
  16. CELECOXIB [Concomitant]
     Active Substance: CELECOXIB
     Dosage: 200MG 1 DAY PER WEEK; T01: 2019-05-20, T02: 2019-09-23, T03: 2020-01-13, T04: 2020-11-25, T05: 2021-
     Dates: start: 20190311
  17. METHOTREXATE SODIUM [Concomitant]
     Active Substance: METHOTREXATE SODIUM
     Dosage: 10 MG, PER WEEK; T03: 2020-01-13, T04: 2020-11-25, T05: 2021-05-20, T06: 2021-08-26, T07: 2022-02-18
     Route: 058
     Dates: start: 20191105
  18. METHOTREXATE SODIUM [Concomitant]
     Active Substance: METHOTREXATE SODIUM
     Route: 058
     Dates: start: 20190520
  19. METHOTREXATE SODIUM [Concomitant]
     Active Substance: METHOTREXATE SODIUM
     Route: 058
     Dates: start: 20190520, end: 20190520
  20. METHOTREXATE SODIUM [Concomitant]
     Active Substance: METHOTREXATE SODIUM
     Route: 058
     Dates: start: 20191105
  21. METHOTREXATE SODIUM [Concomitant]
     Active Substance: METHOTREXATE SODIUM
     Route: 058
     Dates: start: 20191105
  22. METHOTREXATE SODIUM [Concomitant]
     Active Substance: METHOTREXATE SODIUM
     Route: 058
     Dates: start: 20191105
  23. METHOTREXATE SODIUM [Concomitant]
     Active Substance: METHOTREXATE SODIUM
     Route: 058
     Dates: start: 20191105
  24. METHOTREXATE SODIUM [Concomitant]
     Active Substance: METHOTREXATE SODIUM
     Route: 058
     Dates: start: 20191105
  25. METHOTREXATE SODIUM [Concomitant]
     Active Substance: METHOTREXATE SODIUM
     Route: 058
     Dates: start: 20191105
  26. METHOTREXATE SODIUM [Concomitant]
     Active Substance: METHOTREXATE SODIUM
     Route: 058
     Dates: start: 20191105
  27. METHOTREXATE SODIUM [Concomitant]
     Active Substance: METHOTREXATE SODIUM
     Route: 058
     Dates: start: 20191105
  28. METHOTREXATE SODIUM [Concomitant]
     Active Substance: METHOTREXATE SODIUM
     Route: 058
     Dates: start: 20191105
  29. METHOTREXATE SODIUM [Concomitant]
     Active Substance: METHOTREXATE SODIUM
     Route: 058
     Dates: start: 20191105
  30. BISOPROLOL [Concomitant]
     Active Substance: BISOPROLOL
  31. LEVOTHYROXINE [Concomitant]
     Active Substance: LEVOTHYROXINE
  32. PANTOPRAZOLE [Concomitant]
     Active Substance: PANTOPRAZOLE
  33. PROGESTERONE [Concomitant]
     Active Substance: PROGESTERONE
  34. ESTRADIOL [Concomitant]
     Active Substance: ESTRADIOL
  35. ESTRADIOL [Concomitant]
     Active Substance: ESTRADIOL
  36. ESTRIOL [Concomitant]
     Active Substance: ESTRIOL
  37. MIRABEGRON [Concomitant]
     Active Substance: MIRABEGRON
  38. MOVICOL [Concomitant]
     Active Substance: POLYETHYLENE GLYCOL 3350\POTASSIUM CHLORIDE\SODIUM BICARBONATE\SODIUM CHLORIDE
  39. MEBEVERINE [Concomitant]
     Active Substance: MEBEVERINE
  40. CHOLECALCIFEROL [Concomitant]
     Active Substance: CHOLECALCIFEROL
  41. SERTRALINE [Concomitant]
     Active Substance: SERTRALINE HYDROCHLORIDE
  42. QUETIAPINE [Concomitant]
     Active Substance: QUETIAPINE
  43. OPIPRAMOL [Concomitant]
     Active Substance: OPIPRAMOL
  44. BUPRENORPHINE [Concomitant]
     Active Substance: BUPRENORPHINE
  45. BUPRENORPHINE [Concomitant]
     Active Substance: BUPRENORPHINE
  46. FOLIC ACID [Concomitant]
     Active Substance: FOLIC ACID
  47. ALBUTEROL [Concomitant]
     Active Substance: ALBUTEROL
  48. BUDESONIDE [Concomitant]
     Active Substance: BUDESONIDE
  49. ENOXAPARIN [Concomitant]
     Active Substance: ENOXAPARIN
  50. CLARITHROMYCIN [Concomitant]
     Active Substance: CLARITHROMYCIN
  51. CEFPODOXIME [Concomitant]
     Active Substance: CEFPODOXIME
  52. METAMIZOL [Concomitant]
     Active Substance: METAMIZOLE SODIUM
  53. ENBREL [Concomitant]
     Active Substance: ETANERCEPT
     Dates: start: 20190218
  54. ENBREL [Concomitant]
     Active Substance: ETANERCEPT
     Dates: start: 20190218, end: 20220901
  55. ENBREL [Concomitant]
     Active Substance: ETANERCEPT
     Dates: start: 20190218
  56. ENBREL [Concomitant]
     Active Substance: ETANERCEPT
     Dates: start: 20190218
  57. ENBREL [Concomitant]
     Active Substance: ETANERCEPT
     Dates: start: 20190218
  58. ENBREL [Concomitant]
     Active Substance: ETANERCEPT
     Dates: start: 20190218
  59. ENBREL [Concomitant]
     Active Substance: ETANERCEPT
     Dates: start: 20190218
  60. ENBREL [Concomitant]
     Active Substance: ETANERCEPT
     Dates: start: 20190218
  61. ENBREL [Concomitant]
     Active Substance: ETANERCEPT
     Dates: start: 20190218
  62. ENBREL [Concomitant]
     Active Substance: ETANERCEPT
     Dates: start: 20190218
  63. BUPRENORPHINE HYDROCHLORIDE [Concomitant]
     Active Substance: BUPRENORPHINE HYDROCHLORIDE
     Route: 060
  64. ESTRIOL [Concomitant]
     Active Substance: ESTRIOL
  65. NORFLOXACIN [Concomitant]
     Active Substance: NORFLOXACIN
  66. FOLIC ACID [Concomitant]
     Active Substance: FOLIC ACID
  67. ESTRADIOL [Concomitant]
     Active Substance: ESTRADIOL
     Route: 062
  68. CHOLECALCIFEROL [Concomitant]
     Active Substance: CHOLECALCIFEROL
  69. ENOXAPARIN SODIUM [Concomitant]
     Active Substance: ENOXAPARIN SODIUM
  70. OXYBUTYNIN [Concomitant]
     Active Substance: OXYBUTYNIN
  71. PROGESTERONE [Concomitant]
     Active Substance: PROGESTERONE
  72. TROSPIUM [Concomitant]
     Active Substance: TROSPIUM
  73. QUETIAPINE [Concomitant]
     Active Substance: QUETIAPINE
  74. ROSUVASTATIN [Concomitant]
     Active Substance: ROSUVASTATIN
  75. LEVOTHYROXINE [Concomitant]
     Active Substance: LEVOTHYROXINE
  76. PANTOPRAZOLE [Concomitant]
     Active Substance: PANTOPRAZOLE
  77. RAMIPRIL [Concomitant]
     Active Substance: RAMIPRIL
  78. APIXABAN [Concomitant]
     Active Substance: APIXABAN

REACTIONS (5)
  - Anaemia postoperative [Recovered/Resolved]
  - Anaemia postoperative [Recovered/Resolved]
  - Osteomyelitis chronic [Recovered/Resolved]
  - Urinary tract infection [Recovered/Resolved]
  - Pain [Unknown]

NARRATIVE: CASE EVENT DATE: 20230925
